FAERS Safety Report 23231070 (Version 1)
Quarter: 2023Q4

REPORT INFORMATION
  Report Type: Spontaneous
  Country: ES (occurrence: ES)
  Receive Date: 20231127
  Receipt Date: 20231127
  Transmission Date: 20240109
  Serious: Yes (Hospitalization)
  Sender: FDA-Public Use
  Company Number: ES-SUN PHARMACEUTICAL INDUSTRIES LTD-2023RR-420170

PATIENT
  Age: 74 Year
  Sex: Male

DRUGS (6)
  1. MEROPENEM [Suspect]
     Active Substance: MEROPENEM
     Indication: Bacteraemia
     Dosage: 1 GRAM, DAILY
     Route: 040
     Dates: start: 20220719, end: 20220720
  2. ERTAPENEM [Suspect]
     Active Substance: ERTAPENEM
     Indication: Bacteraemia
     Dosage: 1 GRAM, DAILY
     Route: 040
     Dates: start: 20220720, end: 20220720
  3. VALACYCLOVIR HYDROCHLORIDE [Suspect]
     Active Substance: VALACYCLOVIR HYDROCHLORIDE
     Indication: Herpes zoster
     Dosage: 500 MILLIGRAM, DAILY
     Route: 048
     Dates: start: 20220719, end: 20220726
  4. CEFTRIAXONE [Suspect]
     Active Substance: CEFTRIAXONE\CEFTRIAXONE SODIUM
     Indication: Bacteraemia
     Dosage: 1 GRAM, DAILY
     Route: 040
     Dates: start: 20220720, end: 20220730
  5. FLUCONAZOLE [Suspect]
     Active Substance: FLUCONAZOLE
     Indication: Product used for unknown indication
     Dosage: UNK
     Route: 040
     Dates: start: 20220719, end: 20220726
  6. DAPTOMYCIN [Suspect]
     Active Substance: DAPTOMYCIN
     Indication: Bacteraemia
     Dosage: 50 MILLIGRAM, QOD
     Route: 040
     Dates: start: 20220719, end: 20220720

REACTIONS (1)
  - Hepatocellular injury [Recovered/Resolved]

NARRATIVE: CASE EVENT DATE: 20230726
